FAERS Safety Report 5755313-8 (Version None)
Quarter: 2008Q2

REPORT INFORMATION
  Report Type: 
  Country: None (occurrence: None)
  Receive Date: 20080528
  Receipt Date: 20080520
  Transmission Date: 20081010
  Serious: Yes (Hospitalization)
  Sender: FDA-Public Use
  Company Number: E2020-02785-CLI-CH

PATIENT
  Age: 73 Year
  Sex: Female

DRUGS (11)
  1. DONEPEZIL HCL [Suspect]
     Dosage: 10 MG, 1 IN 1 D, ORAL
     Route: 048
  2. LORAZEPAM [Suspect]
     Dosage: 0.5 MG, 1 IN 1 D, ORAL; 1 IN 1 D
     Route: 048
     Dates: start: 20080201, end: 20080205
  3. LORAZEPAM [Suspect]
     Dosage: 0.5 MG, 1 IN 1 D, ORAL; 1 IN 1 D
     Route: 048
     Dates: start: 20080208
  4. DIPIPERON (PIPAMPERONE) [Suspect]
     Dosage: 20 MG, 1 IN 1 D, ORAL
     Route: 048
     Dates: start: 20080206
  5. ENTUMIN (CLOTIAPINE) [Suspect]
     Dosage: 10 MG, 1 IN 1 D, ORAL
     Route: 048
     Dates: start: 20080208
  6. HALDOL [Suspect]
     Dosage: 2 MG, 1 IN 1 D, ORAL; 1 MG, 1 IN 1 D, ORAL; 3 MG, 1 IN 1 D, ORAL
     Route: 048
     Dates: start: 20080121, end: 20080125
  7. HALDOL [Suspect]
     Dosage: 2 MG, 1 IN 1 D, ORAL; 1 MG, 1 IN 1 D, ORAL; 3 MG, 1 IN 1 D, ORAL
     Route: 048
     Dates: end: 20080125
  8. HALDOL [Suspect]
     Dosage: 2 MG, 1 IN 1 D, ORAL; 1 MG, 1 IN 1 D, ORAL; 3 MG, 1 IN 1 D, ORAL
     Route: 048
     Dates: start: 20080205
  9. SEROQUEL [Suspect]
     Dosage: VARIOUS DOSES: 50-200MG/DAY, ORAL; 100 MG, 1 IN 1 D, ORAL
     Route: 048
     Dates: end: 20080130
  10. SEROQUEL [Suspect]
     Dosage: VARIOUS DOSES: 50-200MG/DAY, ORAL; 100 MG, 1 IN 1 D, ORAL
     Route: 048
     Dates: start: 20080131
  11. PANTOPRAZOLE SODIUM [Concomitant]

REACTIONS (10)
  - DEHYDRATION [None]
  - DRUG INTERACTION [None]
  - GAMMOPATHY [None]
  - HYPERCALCAEMIA [None]
  - HYPERNATRAEMIA [None]
  - HYPERPARATHYROIDISM [None]
  - HYPERTHYROIDISM [None]
  - HYPERVISCOSITY SYNDROME [None]
  - HYPOKALAEMIA [None]
  - SOMNOLENCE [None]
